FAERS Safety Report 10714919 (Version 1)
Quarter: 2015Q1

REPORT INFORMATION
  Report Type: Spontaneous
  Country: US (occurrence: US)
  Receive Date: 20150115
  Receipt Date: 20150115
  Transmission Date: 20150721
  Serious: Yes (Hospitalization)
  Sender: FDA-Public Use
  Company Number: US-009507513-1501USA003960

PATIENT
  Age: 82 Year
  Sex: Male

DRUGS (2)
  1. SINEMET [Suspect]
     Active Substance: CARBIDOPA\LEVODOPA
     Indication: PARKINSON^S DISEASE
     Dosage: 25 MG, QID
     Route: 048
     Dates: start: 2002
  2. ANTIMICROBIAL (UNSPECIFIED) [Suspect]
     Active Substance: UNSPECIFIED INGREDIENT

REACTIONS (7)
  - Disorientation [Unknown]
  - Wrong technique in drug usage process [Unknown]
  - Tremor [Unknown]
  - Gastrointestinal tube insertion [Unknown]
  - Pyrexia [Recovered/Resolved]
  - Delirium [Unknown]
  - Hallucination [Unknown]

NARRATIVE: CASE EVENT DATE: 201501
